FAERS Safety Report 15138542 (Version 2)
Quarter: 2018Q4

REPORT INFORMATION
  Report Type: Report from Study
  Country: FR (occurrence: FR)
  Receive Date: 20180713
  Receipt Date: 20181017
  Transmission Date: 20190204
  Serious: Yes (Other)
  Sender: FDA-Public Use
  Company Number: FR-ROCHE-2148857

PATIENT
  Age: 69 Year
  Sex: Female

DRUGS (11)
  1. BLINDED ATEZOLIZUMAB [Suspect]
     Active Substance: ATEZOLIZUMAB
     Route: 042
     Dates: start: 20180604
  2. INEXIUM [Concomitant]
     Active Substance: ESOMEPRAZOLE
     Route: 065
  3. CARBOPLATIN. [Suspect]
     Active Substance: CARBOPLATIN
     Indication: OVARIAN CANCER
     Dosage: DOSE PER PROTOCOL AT AREA UNDER CURVE (AUC) =5, ON DAY 1 OF EVERY CYCLE
     Route: 042
     Dates: end: 20170918
  4. PACLITAXEL. [Suspect]
     Active Substance: PACLITAXEL
     Indication: OVARIAN CANCER
     Route: 042
  5. NIFEDIPINE. [Concomitant]
     Active Substance: NIFEDIPINE
  6. BEVACIZUMAB. [Suspect]
     Active Substance: BEVACIZUMAB
     Indication: OVARIAN CANCER
     Dosage: INTRAVEINOUS ROUTE AT DOSE OF 15MG/KG OR 10 MG/KG DURING THE INDUCTION PERIOD AND WILL BE CONTINUED
     Route: 042
     Dates: start: 20170619
  7. SERETIDE [Concomitant]
     Active Substance: FLUTICASONE PROPIONATE\SALMETEROL XINAFOATE
  8. BLINDED ATEZOLIZUMAB [Suspect]
     Active Substance: ATEZOLIZUMAB
     Indication: OVARIAN CANCER
     Dosage: LAST DOSE OF BLINDED ATEZOLIZUMAB BEFORE THE EVENT ON 23/APR/2018
     Route: 042
     Dates: start: 20170619, end: 20180514
  9. AERIUS (DESLORATADINE) [Concomitant]
     Active Substance: DESLORATADINE
  10. LEVOTHYROX [Concomitant]
     Active Substance: LEVOTHYROXINE
  11. TENORMINE [Concomitant]
     Active Substance: ATENOLOL

REACTIONS (1)
  - Hypothyroidism [Unknown]

NARRATIVE: CASE EVENT DATE: 20180501
